FAERS Safety Report 6439516-5 (Version None)
Quarter: 2009Q4

REPORT INFORMATION
  Report Type: 
  Country: None (occurrence: None)
  Receive Date: 20091113
  Receipt Date: 20091109
  Transmission Date: 20100525
  Serious: Yes (Hospitalization)
  Sender: FDA-Public Use
  Company Number: A0816093A

PATIENT
  Age: 40 Year
  Sex: Male

DRUGS (8)
  1. ADVAIR DISKUS 100/50 [Suspect]
     Indication: ASTHMA
     Dosage: 2PUFF TWICE PER DAY
     Route: 055
  2. COREG CR [Suspect]
     Indication: HYPERTENSION
     Dosage: 20MG PER DAY
     Route: 048
     Dates: start: 20090101
  3. FLONASE [Suspect]
     Indication: MULTIPLE ALLERGIES
     Dosage: 2SPR AS REQUIRED
     Route: 045
  4. LAMICTAL [Suspect]
     Dosage: 300MG PER DAY
     Route: 048
     Dates: start: 20090101
  5. SKELAXIN [Concomitant]
  6. NEURONTIN [Concomitant]
  7. DEXAMETHASONE [Concomitant]
  8. PLAVIX [Concomitant]

REACTIONS (9)
  - BRAIN NEOPLASM MALIGNANT [None]
  - CONFUSIONAL STATE [None]
  - CONVULSION [None]
  - GLIOBLASTOMA [None]
  - HEADACHE [None]
  - HYPERSOMNIA [None]
  - MEMORY IMPAIRMENT [None]
  - MIGRAINE [None]
  - SURGERY [None]
